FAERS Safety Report 19388112 (Version 1)
Quarter: 2021Q2

REPORT INFORMATION
  Report Type: Spontaneous
  Country: GB (occurrence: GB)
  Receive Date: 20210608
  Receipt Date: 20210608
  Transmission Date: 20210717
  Serious: Yes (Disabling)
  Sender: FDA-Public Use
  Company Number: GB-ACCORD-227207

PATIENT
  Age: 54 Year
  Weight: 58.06 kg

DRUGS (1)
  1. ANASTROZOLE ACCORD HEALTHCARE [Suspect]
     Active Substance: ANASTROZOLE
     Indication: BREAST CANCER
     Dosage: 1 MG
     Route: 048
     Dates: start: 20201203, end: 20210403

REACTIONS (3)
  - Thinking abnormal [Recovered/Resolved]
  - Arthralgia [Recovered/Resolved with Sequelae]
  - Fatigue [Recovered/Resolved with Sequelae]

NARRATIVE: CASE EVENT DATE: 20201203
